FAERS Safety Report 8506410-5 (Version None)
Quarter: 2012Q3

REPORT INFORMATION
  Report Type: 
  Country: None (occurrence: None)
  Receive Date: 20120712
  Receipt Date: 20120710
  Transmission Date: 20120928
  Serious: Yes (Other)
  Sender: FDA-Public Use
  Company Number: DE-PFIZER INC-2012112571

PATIENT
  Age: 77 Year
  Sex: Male
  Weight: 75 kg

DRUGS (3)
  1. AMLODIPINE BESYLATE [Suspect]
     Dosage: 10 MG, DAILY
     Dates: start: 20040316, end: 20120507
  2. NORVASC [Suspect]
     Indication: HYPERTENSION
     Dosage: 10 MG, 1X/DAY
     Route: 048
     Dates: start: 20021031, end: 20040315
  3. AMLODIPINE BESYLATE [Suspect]
     Dosage: 5 MG, UNK

REACTIONS (2)
  - TOOTH LOSS [None]
  - GINGIVITIS [None]
